FAERS Safety Report 25426390 (Version 2)
Quarter: 2025Q3

REPORT INFORMATION
  Report Type: Spontaneous
  Country: US (occurrence: US)
  Receive Date: 20250612
  Receipt Date: 20250815
  Transmission Date: 20251020
  Serious: No
  Sender: STALLERGENES
  Company Number: US-STALCOR-2025-AER-01215

PATIENT
  Age: 17 Year
  Sex: Female
  Weight: 59.3 kg

DRUGS (4)
  1. PALFORZIA [Suspect]
     Active Substance: PEANUT
     Indication: Food allergy
     Dosage: MAINTENANCE DOSE 300MG
     Route: 048
     Dates: start: 20240110, end: 20240124
  2. PEANUT [Suspect]
     Active Substance: PEANUT
     Indication: Food allergy
     Route: 048
     Dates: start: 20240124, end: 20240906
  3. ALBUTEROL SULFATE [Concomitant]
     Active Substance: ALBUTEROL SULFATE
     Indication: Product used for unknown indication
     Route: 055
  4. RETIN-A [Concomitant]
     Active Substance: TRETINOIN
     Indication: Product used for unknown indication

REACTIONS (5)
  - Pruritus [Unknown]
  - Urticaria [Unknown]
  - Hypersensitivity [Unknown]
  - Rebound effect [Unknown]
  - Product substitution [Unknown]

NARRATIVE: CASE EVENT DATE: 20240124
